FAERS Safety Report 20405362 (Version 2)
Quarter: 2022Q1

REPORT INFORMATION
  Report Type: Report from Study
  Country: FR (occurrence: FR)
  Receive Date: 20220131
  Receipt Date: 20220217
  Transmission Date: 20220423
  Serious: Yes (Hospitalization, Disabling, Other)
  Sender: FDA-Public Use
  Company Number: FR-BRISTOL-MYERS SQUIBB COMPANY-BMS-2021-090140

PATIENT
  Age: 74 Year
  Sex: Male

DRUGS (2)
  1. NIVOLUMAB [Suspect]
     Active Substance: NIVOLUMAB
     Indication: Non-small cell lung cancer
     Dosage: 480 MILLIGRAM, QMO
     Route: 042
     Dates: start: 20210624, end: 20210916
  2. INNOHEP [Concomitant]
     Active Substance: TINZAPARIN SODIUM
     Indication: Product used for unknown indication
     Route: 065

REACTIONS (5)
  - Immune-mediated lung disease [Recovering/Resolving]
  - Arthralgia [Unknown]
  - Intentional product use issue [Recovering/Resolving]
  - Fall [Unknown]
  - Bone pain [Unknown]

NARRATIVE: CASE EVENT DATE: 20210624
